FAERS Safety Report 9651528 (Version 1)
Quarter: 2013Q4

REPORT INFORMATION
  Report Type: Spontaneous
  Country: US (occurrence: None)
  Receive Date: 20131028
  Receipt Date: 20131028
  Transmission Date: 20140711
  Serious: No
  Sender: FDA-Public Use
  Company Number: None

PATIENT
  Age: 71 Year
  Sex: Female

DRUGS (1)
  1. TREANDA [Suspect]
     Indication: PLASMA CELL MYELOMA
     Dates: start: 20130926

REACTIONS (2)
  - Upper limb fracture [None]
  - Pain [None]
